FAERS Safety Report 5377163-7 (Version None)
Quarter: 2007Q3

REPORT INFORMATION
  Report Type: 
  Country: None (occurrence: None)
  Receive Date: 20070703
  Receipt Date: 20070622
  Transmission Date: 20080115
  Serious: Yes (Hospitalization)
  Sender: FDA-Public Use
  Company Number: US-ELI_LILLY_AND_COMPANY-US200706005261

PATIENT
  Age: 66 Year
  Sex: Male

DRUGS (4)
  1. BYETTA [Suspect]
     Indication: TYPE 2 DIABETES MELLITUS
     Dosage: 5 UG, 2/D
     Route: 058
     Dates: start: 20050101
  2. BYETTA [Suspect]
     Dosage: 10 UG, 2/D
     Route: 058
  3. INSULIN [Concomitant]
     Dosage: 40 U, 2/D
     Route: 058
  4. METFORMIN [Concomitant]
     Dosage: 2000 MG, UNKNOWN
     Route: 048

REACTIONS (3)
  - FALL [None]
  - HIP FRACTURE [None]
  - HYPOAESTHESIA [None]
